FAERS Safety Report 7949705-6 (Version None)
Quarter: 2011Q4

REPORT INFORMATION
  Report Type: 
  Country: None (occurrence: None)
  Receive Date: 20111130
  Receipt Date: 20111121
  Transmission Date: 20120403
  Serious: Yes (Other)
  Sender: FDA-Public Use
  Company Number: PHEH2011US010141

PATIENT
  Sex: Female

DRUGS (9)
  1. MAGNESIUM SULFATE [Concomitant]
  2. COZAAR [Concomitant]
  3. COQ10 [Concomitant]
  4. GLUCOSAMINE [Concomitant]
  5. SYNTHROID [Concomitant]
  6. CALCIUM [Concomitant]
  7. GLEEVEC [Suspect]
     Indication: CHRONIC MYELOID LEUKAEMIA
     Dosage: 400 MG, DAILY
     Route: 048
     Dates: start: 20100204
  8. ACTONEL [Concomitant]
  9. FISH OIL [Concomitant]

REACTIONS (7)
  - LENTIGO [None]
  - YELLOW SKIN [None]
  - CHROMATURIA [None]
  - ARTHRALGIA [None]
  - LIVER DISORDER [None]
  - HEPATIC FUNCTION ABNORMAL [None]
  - ASTHENIA [None]
